FAERS Safety Report 5884041-3 (Version None)
Quarter: 2008Q3

REPORT INFORMATION
  Report Type: 
  Country: None (occurrence: None)
  Receive Date: 20080911
  Receipt Date: 20080903
  Transmission Date: 20090109
  Serious: No
  Sender: FDA-Public Use
  Company Number: 2008-182349-NL

PATIENT
  Age: 56 Year
  Sex: Female

DRUGS (9)
  1. DEXAMETHASONE [Suspect]
     Indication: DRUG TOXICITY PROPHYLAXIS
     Dosage: INTRAVENOUS (NOS)
     Route: 042
     Dates: end: 20080703
  2. DEXAMETHASONE [Suspect]
     Indication: DRUG TOXICITY PROPHYLAXIS
     Dosage: INTRAVENOUS (NOS)
     Route: 042
     Dates: end: 20080723
  3. DEXAMETHASONE [Suspect]
     Indication: DRUG TOXICITY PROPHYLAXIS
     Dosage: INTRAVENOUS (NOS)
     Route: 042
     Dates: end: 20080820
  4. DEXAMETHASONE [Suspect]
     Indication: DRUG TOXICITY PROPHYLAXIS
     Dosage: INTRAVENOUS (NOS)
     Route: 042
     Dates: start: 20080612
  5. TAXOL [Concomitant]
  6. CARBOPLATIN [Concomitant]
  7. RANITIDINE [Concomitant]
  8. LEVOCETIRIZINE [Concomitant]
  9. TROPISETRON [Concomitant]

REACTIONS (2)
  - PARAESTHESIA [None]
  - PRURITUS [None]
